FAERS Safety Report 24988474 (Version 3)
Quarter: 2025Q3

REPORT INFORMATION
  Report Type: Report from Study
  Country: EU (occurrence: EU)
  Receive Date: 20250220
  Receipt Date: 20250809
  Transmission Date: 20251020
  Serious: Yes (Hospitalization, Other)
  Sender: ALEXION PHARMACEUTICALS
  Company Number: EU-ASTRAZENECA-202502GLO010996FR

PATIENT
  Age: 20 Year
  Sex: Male
  Weight: 41 kg

DRUGS (5)
  1. SOLIRIS [Suspect]
     Active Substance: ECULIZUMAB
     Indication: Atypical haemolytic uraemic syndrome
     Dates: start: 20160719, end: 20190812
  2. SOLIRIS [Suspect]
     Active Substance: ECULIZUMAB
     Dates: start: 20220227, end: 20220404
  3. SOLIRIS [Suspect]
     Active Substance: ECULIZUMAB
     Dates: start: 20220404, end: 20220610
  4. SOLIRIS [Suspect]
     Active Substance: ECULIZUMAB
     Dates: start: 20220610, end: 20220912
  5. SOLIRIS [Suspect]
     Active Substance: ECULIZUMAB
     Dates: start: 20220912, end: 20240103

REACTIONS (1)
  - Leptospirosis [Recovered/Resolved]

NARRATIVE: CASE EVENT DATE: 20221104
